FAERS Safety Report 10530871 (Version 1)
Quarter: 2014Q4

REPORT INFORMATION
  Report Type: Report from Study
  Country: BR (occurrence: BR)
  Receive Date: 20141021
  Receipt Date: 20141021
  Transmission Date: 20150528
  Serious: Yes (Death, Hospitalization, Other)
  Sender: FDA-Public Use
  Company Number: BR-ABBVIE-14K-020-1296959-00

PATIENT
  Sex: Female
  Weight: 57 kg

DRUGS (7)
  1. HUMIRA [Suspect]
     Active Substance: ADALIMUMAB
     Route: 065
     Dates: start: 201308
  2. UNSPECIFIED MEDICATION [Suspect]
     Active Substance: UNSPECIFIED INGREDIENT
     Indication: PRODUCT USED FOR UNKNOWN INDICATION
     Route: 065
  3. HUMIRA [Suspect]
     Active Substance: ADALIMUMAB
     Indication: RHEUMATOID ARTHRITIS
     Route: 065
  4. GLIBENCLAMIDE [Concomitant]
     Active Substance: GLYBURIDE
     Indication: DIABETES MELLITUS
  5. METHOTREXATE [Suspect]
     Active Substance: METHOTREXATE
     Indication: ARTHRALGIA
     Route: 065
  6. METICORTEN [Suspect]
     Active Substance: PREDNISONE
     Indication: ARTHRALGIA
     Route: 065
  7. CAPTOPRIL. [Concomitant]
     Active Substance: CAPTOPRIL
     Indication: HYPERTENSION
     Dosage: SOMETIMES

REACTIONS (12)
  - Benign gastrointestinal neoplasm [Unknown]
  - Abdominal distension [Not Recovered/Not Resolved]
  - Asthenia [Not Recovered/Not Resolved]
  - Septic shock [Fatal]
  - Hypersensitivity [Unknown]
  - Arthralgia [Not Recovered/Not Resolved]
  - Dysuria [Not Recovered/Not Resolved]
  - Intestinal obstruction [Not Recovered/Not Resolved]
  - Ileus paralytic [Not Recovered/Not Resolved]
  - Renal failure [Not Recovered/Not Resolved]
  - Blood glucose abnormal [Unknown]
  - Multi-organ failure [Fatal]
